FAERS Safety Report 5731684-3 (Version None)
Quarter: 2008Q2

REPORT INFORMATION
  Report Type: 
  Country: None (occurrence: None)
  Receive Date: 20080508
  Receipt Date: 20080430
  Transmission Date: 20081010
  Serious: Yes (Hospitalization, Other)
  Sender: FDA-Public Use
  Company Number: ES-ELI_LILLY_AND_COMPANY-ES200805000491

PATIENT
  Age: 84 Year
  Sex: Female

DRUGS (5)
  1. FORTEO [Suspect]
     Indication: OSTEOPOROSIS
     Dosage: 20 UG, UNKNOWN
     Route: 058
     Dates: start: 20080417, end: 20080428
  2. REGULATEN [Concomitant]
     Indication: TENSION
     Dosage: UNK, UNKNOWN
     Route: 065
  3. DAFLON [Concomitant]
     Dosage: UNK, UNKNOWN
     Route: 065
  4. IBUPROFEN TABLETS [Concomitant]
     Indication: PAIN
     Dosage: UNK, UNKNOWN
     Route: 065
  5. GELOCATIL [Concomitant]
     Indication: PAIN
     Dosage: UNK, UNKNOWN
     Route: 065

REACTIONS (5)
  - CARDIAC FIBRILLATION [None]
  - NASOPHARYNGITIS [None]
  - PYREXIA [None]
  - RESPIRATORY FAILURE [None]
  - TREMOR [None]
